FAERS Safety Report 7423974-3 (Version None)
Quarter: 2011Q2

REPORT INFORMATION
  Report Type: 
  Country: None (occurrence: None)
  Receive Date: 20110419
  Receipt Date: 20110412
  Transmission Date: 20111010
  Serious: Yes (Other)
  Sender: FDA-Public Use
  Company Number: B0712854A

PATIENT
  Age: 82 Year
  Sex: Male

DRUGS (1)
  1. AVOLVE [Suspect]
     Indication: PRODUCT USED FOR UNKNOWN INDICATION
     Dosage: .5MG PER DAY
     Route: 048

REACTIONS (1)
  - PROSTATIC HAEMORRHAGE [None]
